FAERS Safety Report 18809654 (Version 1)
Quarter: 2021Q1

REPORT INFORMATION
  Report Type: Spontaneous
  Country: US (occurrence: US)
  Receive Date: 20210129
  Receipt Date: 20210129
  Transmission Date: 20210419
  Serious: No
  Sender: FDA-Public Use
  Company Number: US-FRESENIUS KABI-FK202100958

PATIENT

DRUGS (1)
  1. CARBOPLATIN INJECTION 10MG/ML [Suspect]
     Active Substance: CARBOPLATIN
     Indication: PRODUCT USED FOR UNKNOWN INDICATION
     Dosage: CARBOPLATIN FK
     Route: 065
     Dates: start: 20201130

REACTIONS (2)
  - Pruritus [Unknown]
  - Urticaria [Unknown]
